FAERS Safety Report 13291718 (Version 3)
Quarter: 2017Q2

REPORT INFORMATION
  Report Type: Spontaneous
  Country: NL (occurrence: NL)
  Receive Date: 20170303
  Receipt Date: 20170516
  Transmission Date: 20170830
  Serious: Yes (Other)
  Sender: FDA-Public Use
  Company Number: NL-TEVA-743673ROM

PATIENT
  Age: 75 Year
  Sex: Female

DRUGS (1)
  1. DICLOFENACNATRIUM TEVA 50 MG, MAAGSAPRESISTENTE TABLETTEN [Suspect]
     Active Substance: DICLOFENAC
     Indication: ARTHRALGIA
     Route: 065

REACTIONS (2)
  - Retinal tear [Recovered/Resolved]
  - Intraocular pressure increased [Recovered/Resolved]

NARRATIVE: CASE EVENT DATE: 201702
